FAERS Safety Report 4415247-8 (Version None)
Quarter: 2004Q3

REPORT INFORMATION
  Report Type: 
  Country: None (occurrence: None)
  Receive Date: 20040729
  Receipt Date: 20040716
  Transmission Date: 20050211
  Serious: Yes (Hospitalization)
  Sender: FDA-Public Use
  Company Number: 2004220428FR

PATIENT
  Age: 34 Year
  Sex: Male

DRUGS (10)
  1. ISONIAZID [Suspect]
     Dosage: 200 MG, DAILY, ORAL
     Route: 048
     Dates: start: 20040420, end: 20040504
  2. DELTASONE [Suspect]
     Dosage: 100 MG, DAILY, ORAL
     Route: 048
     Dates: start: 20040420, end: 20040504
  3. DELTASONE [Suspect]
     Dosage: 100 MG, DAILY, ORAL
     Route: 048
     Dates: start: 20040505
  4. KETOPROFEN [Suspect]
     Dosage: 300 MG, DAILY, ORAL
     Route: 048
     Dates: start: 20040420, end: 20040513
  5. RIFAMPICIN [Suspect]
     Dosage: 600 MG, DAILY, ORAL
     Route: 048
     Dates: start: 20040420, end: 20040504
  6. ALGEDOL (MORPHINE) TABLET [Concomitant]
  7. FLUOXETINE [Concomitant]
  8. IMMUCYST [Concomitant]
  9. DICLOFENAC [Concomitant]
  10. PROPOFAN (CARBASALATE CALCIUM, DEXTROPROPOXYPHENE) [Concomitant]

REACTIONS (2)
  - ANXIETY [None]
  - MANIA [None]
